FAERS Safety Report 6549629-5 (Version None)
Quarter: 2010Q1

REPORT INFORMATION
  Report Type: 
  Country: None (occurrence: None)
  Receive Date: 20100119
  Receipt Date: 20100107
  Transmission Date: 20100710
  Serious: Yes (Other)
  Sender: FDA-Public Use
  Company Number: CAP10000012

PATIENT
  Age: 48 Year
  Sex: Female
  Weight: 61.2 kg

DRUGS (4)
  1. ACTONEL [Suspect]
     Dosage: 35 MG, 1/WEEK, ORAL
     Route: 048
  2. AMITRIPTYLINE HYDROCHLORIDE [Concomitant]
  3. CAL-D (CALCIUM CARBONATE, COLECALCIFEROL) [Concomitant]
  4. MULTIVITAMINS WITH MINERALS /02319901/(CALCIUM PANTOTHENATE, CHOLINE, [Concomitant]

REACTIONS (12)
  - ABDOMINAL PAIN [None]
  - ABDOMINAL PAIN UPPER [None]
  - ARTHRALGIA [None]
  - ASTHENIA [None]
  - DRY EYE [None]
  - ERYTHEMA [None]
  - EYE IRRITATION [None]
  - HEADACHE [None]
  - MUSCULOSKELETAL STIFFNESS [None]
  - OCULAR HYPERAEMIA [None]
  - RESPIRATORY DISORDER [None]
  - SKIN PLAQUE [None]
